FAERS Safety Report 8260373-9 (Version None)
Quarter: 2012Q2

REPORT INFORMATION
  Report Type: 
  Country: None (occurrence: None)
  Receive Date: 20120404
  Receipt Date: 20120328
  Transmission Date: 20120825
  Serious: Yes (Congenital Anomaly)
  Sender: FDA-Public Use
  Company Number: US-GILEAD-2010-0030840

PATIENT
  Sex: Male

DRUGS (8)
  1. DOXYCYCLINE [Concomitant]
     Route: 064
  2. ACETAMINOPHEN [Concomitant]
     Route: 064
  3. METRONIDAZOLE [Concomitant]
     Route: 064
  4. FERROUS SULFATE TAB [Concomitant]
     Route: 064
  5. TENOFOVIR DISOPROXIL FUMARATE [Suspect]
     Indication: PROPHYLAXIS AGAINST HIV INFECTION
     Route: 064
  6. IBUPROFEN [Concomitant]
     Route: 064
  7. AMOXICILLIN [Concomitant]
     Route: 064
  8. FOLIC ACID [Concomitant]
     Route: 064

REACTIONS (1)
  - ANKYLOGLOSSIA CONGENITAL [None]
